FAERS Safety Report 8524004-2 (Version None)
Quarter: 2012Q3

REPORT INFORMATION
  Report Type: 
  Country: None (occurrence: None)
  Receive Date: 20120720
  Receipt Date: 20120712
  Transmission Date: 20120928
  Serious: Yes (Other)
  Sender: FDA-Public Use
  Company Number: GB-B.I. PHARMACEUTICALS,INC./RIDGEFIELD-2012-UK-00926UK

PATIENT
  Age: 69 Year
  Sex: Female

DRUGS (15)
  1. CARVEDILOL [Concomitant]
     Indication: BLOOD PRESSURE
     Dosage: 12.5 MG
     Dates: start: 20120528
  2. SIMVASTATIN [Concomitant]
     Dosage: 20 MG
     Dates: start: 20120528
  3. DOXAZOSIN MESYLATE [Concomitant]
     Indication: BLOOD PRESSURE
     Dosage: 2 ANZ
     Dates: start: 20120611
  4. WARFARIN SODIUM [Concomitant]
     Dosage: 3 MG
     Dates: start: 20120528
  5. ALLOPURINOL [Concomitant]
     Dosage: 100 MG
     Dates: start: 20110630
  6. FUROSEMIDE [Concomitant]
     Indication: BLOOD PRESSURE
     Dosage: 40 MG
     Dates: start: 20110907
  7. CANDESARTAN CILEXETIL [Concomitant]
     Indication: BLOOD PRESSURE
     Dosage: 8 MG
     Dates: start: 20120611
  8. TRAJENTA [Suspect]
     Indication: DIABETES MELLITUS
     Dosage: 5 MG
     Route: 048
     Dates: start: 20120502, end: 20120619
  9. DIGOXIN [Concomitant]
     Dosage: 125 MCG
     Dates: start: 20120528
  10. OMEPRAZOLE [Concomitant]
     Dosage: 20 MG
     Dates: start: 20120606
  11. REPAGLINIDE [Concomitant]
     Indication: DIABETES MELLITUS
     Dosage: 1 MG
     Dates: start: 20120619
  12. REPAGLINIDE [Concomitant]
     Dosage: 2 MG
     Dates: start: 20120528
  13. LEVEMIR [Concomitant]
     Indication: DIABETES MELLITUS
     Dosage: 10 U
  14. DOXAZOSIN MESYLATE [Concomitant]
     Dosage: 8 MG
     Dates: start: 20120528
  15. WARFARIN SODIUM [Concomitant]
     Dosage: 1 MG
     Dates: start: 20120424

REACTIONS (1)
  - GINGIVAL HYPERTROPHY [None]
